FAERS Safety Report 19994962 (Version 1)
Quarter: 2021Q4

REPORT INFORMATION
  Report Type: Spontaneous
  Country: US (occurrence: US)
  Receive Date: 20211025
  Receipt Date: 20211025
  Transmission Date: 20220303
  Serious: Yes (Other)
  Sender: FDA-Public Use
  Company Number: None

PATIENT
  Sex: Female

DRUGS (1)
  1. INLYTA [Suspect]
     Active Substance: AXITINIB
     Indication: Renal cancer
     Dosage: ?          OTHER FREQUENCY:SEE B.6(PAGE2);
     Route: 048
     Dates: start: 20201208

REACTIONS (2)
  - Renal surgery [None]
  - Intentional dose omission [None]
